FAERS Safety Report 4959830-X (Version None)
Quarter: 2006Q1

REPORT INFORMATION
  Report Type: 
  Country: None (occurrence: None)
  Receive Date: 20060328
  Receipt Date: 20060313
  Transmission Date: 20060701
  Serious: Yes (Hospitalization, Other)
  Sender: FDA-Public Use
  Company Number: USA-2006-0023567

PATIENT
  Age: 58 Year
  Sex: Female
  Weight: 62.6 kg

DRUGS (7)
  1. OXYCONTIN [Suspect]
     Indication: BACK PAIN
     Dosage: 20 MG, BID; 40 MG, BID
  2. NEURONTIN [Concomitant]
  3. INDERAL [Concomitant]
  4. ESTRATEST [Concomitant]
  5. CORTISONE ACETATE [Concomitant]
  6. PROZAC [Concomitant]
  7. VERAPAMIL [Concomitant]

REACTIONS (5)
  - COMA [None]
  - DRUG EFFECT DECREASED [None]
  - DRUG SCREEN NEGATIVE [None]
  - DRUG WITHDRAWAL CONVULSIONS [None]
  - OVERDOSE [None]
